FAERS Safety Report 6229220-0 (Version None)
Quarter: 2009Q2

REPORT INFORMATION
  Report Type: 
  Country: None (occurrence: None)
  Receive Date: 20090601
  Receipt Date: 20080930
  Transmission Date: 20091009
  Serious: Yes (Hospitalization)
  Sender: FDA-Public Use
  Company Number: US200810000273

PATIENT
  Age: 57 Year
  Sex: Male
  Weight: 79.4 kg

DRUGS (7)
  1. BYETTA [Suspect]
  2. EXENATIDE UNK STRENGTH PEN [Concomitant]
  3. VIREAD [Concomitant]
  4. KALETRA [Concomitant]
  5. ZIAGEN [Concomitant]
  6. INSULIN [Concomitant]
  7. . [Concomitant]

REACTIONS (1)
  - RENAL FAILURE [None]
